FAERS Safety Report 24607135 (Version 1)
Quarter: 2024Q4

REPORT INFORMATION
  Report Type: Spontaneous
  Country: US (occurrence: None)
  Receive Date: 20241110
  Receipt Date: 20241110
  Transmission Date: 20250114
  Serious: Yes (Life-Threatening, Hospitalization)
  Sender: Public
  Company Number: None

PATIENT
  Age: 71 Year
  Sex: Female
  Weight: 69.75 kg

DRUGS (7)
  1. KISQALI [Suspect]
     Active Substance: RIBOCICLIB
     Indication: Breast cancer female
     Dosage: 600 MG DAILY ORAL
     Route: 048
     Dates: start: 20240920, end: 20241011
  2. letrozole 2.5mg tablet daily [Concomitant]
  3. Dexamethasone 2 mg tablet every 12 hours [Concomitant]
  4. Pantoprazole 40mg tablet daily [Concomitant]
  5. Vitamin B-12 1,000mg tablet daily [Concomitant]
  6. Vitamin D3 50,000 units once weekly [Concomitant]
  7. Metformin 500mg tablet [Concomitant]

REACTIONS (2)
  - Acute respiratory failure [None]
  - Pneumonia [None]

NARRATIVE: CASE EVENT DATE: 20241012
